FAERS Safety Report 4705197-1 (Version None)
Quarter: 2005Q2

REPORT INFORMATION
  Report Type: 
  Country: None (occurrence: None)
  Receive Date: 20050628
  Receipt Date: 20050613
  Transmission Date: 20051028
  Serious: Yes (Other)
  Sender: FDA-Public Use
  Company Number: 2005089295

PATIENT
  Age: 75 Year
  Sex: Male

DRUGS (3)
  1. VIAGRA [Suspect]
     Indication: ERECTILE DYSFUNCTION
     Dosage: SEE IMAGE
     Route: 048
     Dates: start: 20050320
  2. VARDENAFIL HYDROCHLORIDE (VARDENAFIL HYDROCHLORIDE) [Suspect]
     Indication: ERECTILE DYSFUNCTION
     Dosage: SEE IMAGE
     Route: 048
     Dates: start: 20050320
  3. ASPIRIN [Concomitant]

REACTIONS (21)
  - AMAUROSIS FUGAX [None]
  - AORTIC THROMBOSIS [None]
  - ARTERIOSCLEROTIC RETINOPATHY [None]
  - BLOOD PRESSURE DIASTOLIC DECREASED [None]
  - BUNDLE BRANCH BLOCK RIGHT [None]
  - CAROTID ARTERY ATHEROMA [None]
  - CAROTID ARTERY THROMBOSIS [None]
  - CATARACT [None]
  - DIZZINESS [None]
  - DRUG EFFECT DECREASED [None]
  - EYE PAIN [None]
  - FATIGUE [None]
  - GLAUCOMA [None]
  - HEADACHE [None]
  - HEART RATE DECREASED [None]
  - OPTIC NERVE CUP/DISC RATIO INCREASED [None]
  - RETINAL ARTERY EMBOLISM [None]
  - RETINAL ARTERY OCCLUSION [None]
  - RETINAL VEIN OCCLUSION [None]
  - TREATMENT NONCOMPLIANCE [None]
  - VISUAL ACUITY REDUCED [None]
